FAERS Safety Report 15220944 (Version 3)
Quarter: 2018Q4

REPORT INFORMATION
  Report Type: Report from Study
  Country: MX (occurrence: MX)
  Receive Date: 20180731
  Receipt Date: 20181015
  Transmission Date: 20190204
  Serious: No
  Sender: FDA-Public Use
  Company Number: PHHY2018MX056411

PATIENT
  Sex: Female
  Weight: 50 kg

DRUGS (4)
  1. AMOKSIKLAV BID [Concomitant]
     Indication: PRODUCT USED FOR UNKNOWN INDICATION
     Dosage: 100 MG, Q12H
     Route: 048
     Dates: start: 20180506, end: 201805
  2. DERMOVATE [Concomitant]
     Active Substance: CLOBETASOL
     Indication: PSORIASIS
     Dosage: UNK, PRN
     Route: 061
  3. COSENTYX [Suspect]
     Active Substance: SECUKINUMAB
     Indication: PSORIATIC ARTHROPATHY
     Dosage: 150 MG, QMO
     Route: 059
     Dates: start: 201701
  4. COSENTYX [Suspect]
     Active Substance: SECUKINUMAB
     Indication: PSORIASIS

REACTIONS (4)
  - Lymphoedema [Unknown]
  - Nasal crusting [Unknown]
  - Incorrect route of product administration [Unknown]
  - Rhinitis [Recovering/Resolving]
